FAERS Safety Report 14578848 (Version 3)
Quarter: 2018Q1

REPORT INFORMATION
  Report Type: Spontaneous
  Country: GR (occurrence: GR)
  Receive Date: 20180227
  Receipt Date: 20180314
  Transmission Date: 20180509
  Serious: Yes (Hospitalization)
  Sender: FDA-Public Use
  Company Number: GR-BIOGEN-2018BI00528609

PATIENT
  Age: 52 Year
  Sex: Female

DRUGS (1)
  1. TECFIDERA [Suspect]
     Active Substance: DIMETHYL FUMARATE
     Indication: MULTIPLE SCLEROSIS
     Route: 048

REACTIONS (3)
  - Gallbladder polyp [Unknown]
  - Underweight [Unknown]
  - Cholecystitis [Recovered/Resolved]

NARRATIVE: CASE EVENT DATE: 201712
